FAERS Safety Report 8738739 (Version 2)
Quarter: 2012Q4

REPORT INFORMATION
  Report Type: 
  Country: US (occurrence: US)
  Receive Date: 20120823
  Receipt Date: 20120904
  Transmission Date: 20130627
  Serious: Yes (Hospitalization, Other)
  Sender: FDA-Public Use
  Company Number: US-PFIZER INC-2012202372

PATIENT
  Age: 72 Year
  Sex: Male
  Weight: 72.56 kg

DRUGS (4)
  1. DIFLUCAN [Suspect]
     Indication: MENINGITIS COCCIDIOIDES
     Dosage: 1000 mg, 1x/day
  2. DIFLUCAN [Suspect]
     Indication: LUMBAR PUNCTURE
     Dosage: 600 mg, 1x/day
     Dates: end: 201112
  3. ADVAIR DISKUS [Concomitant]
     Indication: DYSPNOEA
     Dosage: two puffs daily
  4. NASONEX [Concomitant]
     Dosage: UNK

REACTIONS (5)
  - Knee arthroplasty [Unknown]
  - Dermatitis allergic [Recovering/Resolving]
  - Dry mouth [Recovered/Resolved]
  - Chapped lips [Recovered/Resolved]
  - Drug hypersensitivity [Unknown]
